FAERS Safety Report 4676206-3 (Version None)
Quarter: 2005Q2

REPORT INFORMATION
  Report Type: 
  Country: None (occurrence: None)
  Receive Date: 20050527
  Receipt Date: 20041026
  Transmission Date: 20051028
  Serious: No
  Sender: FDA-Public Use
  Company Number: US-GLAXOSMITHKLINE-A0531285A

PATIENT
  Age: 50 Year
  Sex: Female

DRUGS (5)
  1. WELLBUTRIN XL [Suspect]
     Indication: DEPRESSION
     Dosage: 300MG PER DAY
     Route: 048
     Dates: start: 20041020, end: 20041025
  2. LAMICTAL [Suspect]
     Indication: BIPOLAR DISORDER
     Dosage: 300MG PER DAY
     Route: 048
     Dates: start: 20041101
  3. SYNTHROID [Concomitant]
  4. SUN BATH PROTECTIVE TANNING LOTION [Concomitant]
     Dosage: 45Z UNKNOWN
     Route: 061
  5. LEVOTHYROXINE SODIUM [Concomitant]

REACTIONS (4)
  - DIZZINESS [None]
  - PALPITATIONS [None]
  - SKIN HYPERPIGMENTATION [None]
  - SWOLLEN TONGUE [None]
